FAERS Safety Report 13009073 (Version 1)
Quarter: 2016Q4

REPORT INFORMATION
  Report Type: Spontaneous
  Country: DE (occurrence: DE)
  Receive Date: 20161208
  Receipt Date: 20161208
  Transmission Date: 20170207
  Serious: Yes (Congenital Anomaly, Other)
  Sender: FDA-Public Use
  Company Number: DE-DRREDDYS-GER/GER/16/0085259

PATIENT
  Age: 1 Day
  Sex: Male
  Weight: 3.41 kg

DRUGS (1)
  1. LEVETIRACETAM. [Suspect]
     Active Substance: LEVETIRACETAM
     Indication: EPILEPSY
     Dosage: INCREASED DOSAGE (6G/D) DURING THE THIRD TRIMESTER BECAUSE OF INCREASED CLEARANCE
     Route: 064
     Dates: start: 20151217, end: 20160909

REACTIONS (6)
  - Selective eating disorder [Recovered/Resolved]
  - Brain malformation [Not Recovered/Not Resolved]
  - Hypotonia neonatal [Recovered/Resolved]
  - Atrial septal defect [Recovered/Resolved]
  - Foetal exposure during pregnancy [Unknown]
  - Cerebral cyst [Not Recovered/Not Resolved]

NARRATIVE: CASE EVENT DATE: 20160909
